FAERS Safety Report 23004699 (Version 2)
Quarter: 2024Q4

REPORT INFORMATION
  Report Type: Spontaneous
  Country: US (occurrence: US)
  Receive Date: 20230929
  Receipt Date: 20241016
  Transmission Date: 20250115
  Serious: No
  Sender: CELLTRION
  Company Number: US-CELLTRION INC.-2023US012928

PATIENT

DRUGS (6)
  1. INFLECTRA [Suspect]
     Active Substance: INFLIXIMAB-DYYB
     Indication: Crohn^s disease
     Dosage: 700MG EVERY SEVEN WEEKS, INTRAVENOUS
     Route: 042
     Dates: start: 202208
  2. INFLECTRA [Suspect]
     Active Substance: INFLIXIMAB-DYYB
     Dosage: 700MG EVERY SEVEN WEEKS, INTRAVENOUS
     Route: 042
     Dates: start: 20221015
  3. INFLECTRA [Suspect]
     Active Substance: INFLIXIMAB-DYYB
     Dosage: 700MG EVERY SEVEN WEEKS, INTRAVENOUS
     Route: 042
     Dates: start: 20221202
  4. INFLECTRA [Suspect]
     Active Substance: INFLIXIMAB-DYYB
     Dosage: 700MG EVERY SEVEN WEEKS, INTRAVENOUS
     Route: 042
     Dates: start: 20230120
  5. INFLECTRA [Suspect]
     Active Substance: INFLIXIMAB-DYYB
     Dosage: 700MG EVERY SEVEN WEEKS, INTRAVENOUS
     Route: 042
     Dates: start: 20230310
  6. INFLECTRA [Suspect]
     Active Substance: INFLIXIMAB-DYYB
     Dosage: 700MG EVERY SEVEN WEEKS, INTRAVENOUS
     Route: 042
     Dates: start: 20230506

REACTIONS (2)
  - Wrong technique in product usage process [Unknown]
  - Intentional product use issue [Unknown]

NARRATIVE: CASE EVENT DATE: 20221015
